FAERS Safety Report 5962516-6 (Version None)
Quarter: 2008Q4

REPORT INFORMATION
  Report Type: 
  Country: None (occurrence: None)
  Receive Date: 20081121
  Receipt Date: 20081110
  Transmission Date: 20090506
  Serious: Yes (Hospitalization, Other)
  Sender: FDA-Public Use
  Company Number: US-PFIZER INC-2008095272

PATIENT
  Sex: Female
  Weight: 61.818 kg

DRUGS (8)
  1. DETROL LA [Suspect]
     Indication: POLLAKIURIA
  2. DETROL LA [Suspect]
     Indication: URINARY INCONTINENCE
  3. CRESTOR [Concomitant]
  4. NASONEX [Concomitant]
  5. FOSAMAX [Concomitant]
  6. VITAMINS [Concomitant]
  7. ACETYLSALICYLIC ACID SRT [Concomitant]
  8. FEXOFENADINE [Concomitant]

REACTIONS (4)
  - COLITIS ISCHAEMIC [None]
  - CONSTIPATION [None]
  - DEHYDRATION [None]
  - DIVERTICULITIS [None]
